FAERS Safety Report 6667511-X (Version None)
Quarter: 2010Q2

REPORT INFORMATION
  Report Type: 
  Country: None (occurrence: None)
  Receive Date: 20100405
  Receipt Date: 20100401
  Transmission Date: 20101027
  Serious: Yes (Death, Other)
  Sender: FDA-Public Use
  Company Number: BR-ROCHE-694637

PATIENT
  Age: 81 Year
  Sex: Male

DRUGS (1)
  1. CLONAZEPAM [Suspect]
     Indication: INSOMNIA
     Dosage: STRENGTH: 2.5MG/ML, OTHER INDICATION: ANXIETY AND SLEEP-TALKING
     Route: 048
     Dates: start: 20100301, end: 20100301

REACTIONS (2)
  - DEATH [None]
  - SEDATION [None]
